FAERS Safety Report 11892396 (Version 1)
Quarter: 2016Q1

REPORT INFORMATION
  Report Type: Spontaneous
  Country: GB (occurrence: GB)
  Receive Date: 20160106
  Receipt Date: 20160106
  Transmission Date: 20160526
  Serious: Yes (Congenital Anomaly)
  Sender: FDA-Public Use
  Company Number: PHHY2015GB169653

PATIENT

DRUGS (3)
  1. TRUVADA [Suspect]
     Active Substance: EMTRICITABINE\TENOFOVIR DISOPROXIL FUMARATE
     Indication: ASYMPTOMATIC HIV INFECTION
     Dosage: 1 DF, QD
     Route: 064
     Dates: start: 20101007
  2. NEVIRAPINE. [Suspect]
     Active Substance: NEVIRAPINE
     Indication: ASYMPTOMATIC HIV INFECTION
     Dosage: 400 MG, QD
     Route: 064
     Dates: start: 20101007
  3. FOLIC ACID. [Concomitant]
     Active Substance: FOLIC ACID
     Indication: PRODUCT USED FOR UNKNOWN INDICATION
     Route: 064

REACTIONS (1)
  - Congenital genitourinary abnormality [Not Recovered/Not Resolved]

NARRATIVE: CASE EVENT DATE: 20150807
